FAERS Safety Report 13134048 (Version 1)
Quarter: 2017Q1

REPORT INFORMATION
  Report Type: Spontaneous
  Country: GB (occurrence: GB)
  Receive Date: 20170120
  Receipt Date: 20170120
  Transmission Date: 20170428
  Serious: Yes (Hospitalization)
  Sender: FDA-Public Use
  Company Number: GB-TEVA-730623ACC

PATIENT
  Age: 2 Year
  Sex: Female

DRUGS (1)
  1. RANITIDINE. [Suspect]
     Active Substance: RANITIDINE
     Indication: GASTROOESOPHAGEAL REFLUX DISEASE
     Dosage: 22.5 MILLIGRAM DAILY;
     Route: 048
     Dates: start: 2015

REACTIONS (9)
  - Constipation [Recovered/Resolved]
  - Weight decreased [Recovered/Resolved]
  - Septic rash [Recovered/Resolved]
  - Chest discomfort [Recovered/Resolved]
  - Accidental overdose [Recovered/Resolved]
  - Malaise [Recovered/Resolved]
  - Condition aggravated [Recovered/Resolved]
  - Aspiration [Recovered/Resolved]
  - Diarrhoea [Recovered/Resolved]
